FAERS Safety Report 8879082 (Version 1)
Quarter: 2012Q4

REPORT INFORMATION
  Report Type: Spontaneous
  Country: US (occurrence: None)
  Receive Date: 20121031
  Receipt Date: 20121031
  Transmission Date: 20130627
  Serious: No
  Sender: FDA-Public Use
  Company Number: None

PATIENT
  Age: 71 Year
  Sex: Male
  Weight: 75 kg

DRUGS (1)
  1. CETUXIMAB [Suspect]
     Route: 042
     Dates: start: 20120910, end: 20120910

REACTIONS (8)
  - Pruritus [None]
  - Flushing [None]
  - Loss of consciousness [None]
  - Urinary incontinence [None]
  - Cardio-respiratory arrest [None]
  - Hypotension [None]
  - Syncope [None]
  - Pulse absent [None]
